FAERS Safety Report 7436133-5 (Version None)
Quarter: 2011Q2

REPORT INFORMATION
  Report Type: 
  Country: None (occurrence: None)
  Receive Date: 20110425
  Receipt Date: 20110412
  Transmission Date: 20111010
  Serious: Yes (Hospitalization)
  Sender: FDA-Public Use
  Company Number: US-BAYER-2011-033287

PATIENT
  Age: 35 Year
  Sex: Male
  Weight: 95 kg

DRUGS (1)
  1. BAYER EXTRA STRENGTH BACK + BODY PAIN [Suspect]
     Indication: PAIN
     Dosage: 1-2 TABLETS ONCE DAILY / COUNT BOTTLE 50S
     Route: 048
     Dates: start: 20101101, end: 20110401

REACTIONS (3)
  - MALAISE [None]
  - FAECES DISCOLOURED [None]
  - PEPTIC ULCER [None]
